FAERS Safety Report 5928495-2 (Version None)
Quarter: 2008Q4

REPORT INFORMATION
  Report Type: 
  Country: None (occurrence: None)
  Receive Date: 20081021
  Receipt Date: 20080617
  Transmission Date: 20090506
  Serious: Yes (Hospitalization)
  Sender: FDA-Public Use
  Company Number: CL000372008

PATIENT
  Age: 77 Year

DRUGS (7)
  1. CIPROFLOXACIN [Suspect]
     Indication: LOWER RESPIRATORY TRACT INFECTION
     Dosage: ORAL
     Route: 048
  2. CALCICHEW [Concomitant]
  3. LANSOPRAZOLE [Concomitant]
  4. MECYSTEINE [Concomitant]
  5. RISEDRONATE SODIUM [Concomitant]
  6. SERETIDE [Concomitant]
  7. WARFARIN SODIUM [Concomitant]

REACTIONS (1)
  - TENDON RUPTURE [None]
